FAERS Safety Report 4498489-5 (Version None)
Quarter: 2004Q4

REPORT INFORMATION
  Report Type: 
  Country: None (occurrence: None)
  Receive Date: 20041105
  Receipt Date: 20041027
  Transmission Date: 20050328
  Serious: Yes (Hospitalization, Other)
  Sender: FDA-Public Use
  Company Number: 2004084901

PATIENT
  Age: 74 Year
  Sex: Female

DRUGS (3)
  1. NORVASC [Suspect]
     Indication: ILL-DEFINED DISORDER
     Dosage: 10 MG (10 MG, 1 IN 1 D), ORAL
     Route: 048
     Dates: start: 19990701, end: 20040810
  2. FUROSEMIDE [Suspect]
     Indication: ILL-DEFINED DISORDER
     Dosage: 200 MG (1 IN 1 D), ORAL
     Route: 048
  3. CAPTOPRIL [Suspect]
     Indication: ILL-DEFINED DISORDER
     Dosage: 150 MG (1 IN 1 D), ORAL
     Route: 048
     Dates: start: 19990630, end: 20040813

REACTIONS (4)
  - EOSINOPHILIA [None]
  - HYPERURICAEMIA [None]
  - PHOTOSENSITIVITY REACTION [None]
  - PRURIGO [None]
